FAERS Safety Report 4497475-9 (Version None)
Quarter: 2004Q4

REPORT INFORMATION
  Report Type: 
  Country: None (occurrence: None)
  Receive Date: 20041104
  Receipt Date: 20041025
  Transmission Date: 20050328
  Serious: No
  Sender: FDA-Public Use
  Company Number: BRO-007856

PATIENT
  Age: 71 Year
  Sex: Female

DRUGS (4)
  1. IOPAMIDOL-300 [Suspect]
     Indication: COMPUTERISED TOMOGRAM
     Dosage: 100 ML
     Route: 042
     Dates: start: 20041008, end: 20041008
  2. ADALAT CC [Concomitant]
  3. FAMOTIDINE [Concomitant]
  4. NELBON (NITRAZEPAM) [Concomitant]

REACTIONS (10)
  - ARTERIOSPASM CORONARY [None]
  - BLOOD PRESSURE DECREASED [None]
  - CONTRAST MEDIA REACTION [None]
  - DRUG HYPERSENSITIVITY [None]
  - ELECTROCARDIOGRAM ST SEGMENT ELEVATION [None]
  - FEELING ABNORMAL [None]
  - HYPOPNOEA [None]
  - LOSS OF CONSCIOUSNESS [None]
  - MYOCARDIAL INFARCTION [None]
  - STRIDOR [None]
